FAERS Safety Report 22881456 (Version 3)
Quarter: 2024Q1

REPORT INFORMATION
  Report Type: Other
  Country: MX (occurrence: None)
  Receive Date: 20230830
  Receipt Date: 20240329
  Transmission Date: 20240409
  Serious: Yes (Other)
  Sender: FDA-Public Use
  Company Number: MX-ROCHE-3409698

PATIENT
  Age: 20 Year
  Sex: Male
  Weight: 79 kg

DRUGS (1)
  1. OCREVUS [Suspect]
     Active Substance: OCRELIZUMAB
     Indication: Multiple sclerosis
     Dosage: VIAL 300MG/10ML (30MG/ML) SUBSEQUENT DOSE ON 15/FEB/2023, 15/AUG/2023
     Route: 042
     Dates: start: 20220815

REACTIONS (8)
  - Nervousness [Recovered/Resolved]
  - Throat irritation [Recovered/Resolved]
  - Hypoaesthesia oral [Recovered/Resolved]
  - Urticaria [Recovered/Resolved]
  - Pruritus [Recovered/Resolved]
  - Oropharyngeal pain [Recovered/Resolved]
  - Anaphylactic reaction [Recovered/Resolved]
  - Somnolence [Recovered/Resolved]

NARRATIVE: CASE EVENT DATE: 20220815
